FAERS Safety Report 5194071-5 (Version None)
Quarter: 2006Q4

REPORT INFORMATION
  Report Type: 
  Country: None (occurrence: None)
  Receive Date: 20061222
  Receipt Date: 20061208
  Transmission Date: 20070319
  Serious: Yes (Disabling, Other)
  Sender: FDA-Public Use
  Company Number: 2006002584

PATIENT
  Age: 57 Year
  Sex: Female
  Weight: 57.6068 kg

DRUGS (7)
  1. DEPO-MEDROL [Suspect]
     Indication: SCIATICA
     Dosage: 80 MG (80 MG, 1 IN 1 D), EPIDURAL
     Route: 008
     Dates: start: 20000126
  2. CELEBREX [Suspect]
     Indication: PAIN
  3. NEURONTIN [Suspect]
     Indication: SCIATICA
     Dosage: 900 MG (300 MG 3 IN 1 D)
  4. BEXTRA [Suspect]
     Indication: PAIN
  5. LYRICA [Suspect]
  6. PREMARIN [Concomitant]
  7. ZOCOR [Concomitant]

REACTIONS (50)
  - ABASIA [None]
  - AGITATION [None]
  - ANXIETY [None]
  - ARACHNOID CYST [None]
  - ARACHNOIDITIS [None]
  - ASTHENIA [None]
  - BACK PAIN [None]
  - BLISTER [None]
  - BLOOD CHOLESTEROL INCREASED [None]
  - BLOOD PRESSURE INCREASED [None]
  - BURNING SENSATION [None]
  - CONFUSIONAL STATE [None]
  - CYSTITIS [None]
  - DEPRESSION [None]
  - DRUG INEFFECTIVE [None]
  - DYSSTASIA [None]
  - EXERCISE TOLERANCE DECREASED [None]
  - FACE INJURY [None]
  - FALL [None]
  - FEELING HOT [None]
  - FLUID RETENTION [None]
  - GAIT DISTURBANCE [None]
  - HEADACHE [None]
  - HEPATIC ENZYME INCREASED [None]
  - HYPOAESTHESIA [None]
  - IMPAIRED WORK ABILITY [None]
  - INFLAMMATION [None]
  - INSOMNIA [None]
  - INTERVERTEBRAL DISC PROTRUSION [None]
  - LIMB DISCOMFORT [None]
  - MUSCLE SPASMS [None]
  - MUSCLE TIGHTNESS [None]
  - MUSCULOSKELETAL STIFFNESS [None]
  - NASAL DISORDER [None]
  - NERVE INJURY [None]
  - OEDEMA PERIPHERAL [None]
  - ORAL DISCHARGE [None]
  - PAIN [None]
  - PAIN IN EXTREMITY [None]
  - PERSONALITY CHANGE [None]
  - POST PROCEDURAL COMPLICATION [None]
  - RHINORRHOEA [None]
  - SCREAMING [None]
  - SOMNOLENCE [None]
  - SPEECH DISORDER [None]
  - SPINAL COLUMN STENOSIS [None]
  - SURGERY [None]
  - TREATMENT NONCOMPLIANCE [None]
  - WEIGHT INCREASED [None]
  - WHITE BLOOD CELL COUNT INCREASED [None]
